FAERS Safety Report 19157604 (Version 1)
Quarter: 2021Q2

REPORT INFORMATION
  Report Type: Spontaneous
  Country: IT (occurrence: IT)
  Receive Date: 20210420
  Receipt Date: 20210420
  Transmission Date: 20210717
  Serious: Yes (Other)
  Sender: FDA-Public Use
  Company Number: IT-MYLANLABS-2021M1022228

PATIENT
  Sex: Female

DRUGS (1)
  1. BISOPROLOL [Suspect]
     Active Substance: BISOPROLOL
     Indication: TACHYCARDIA
     Dosage: UNK

REACTIONS (13)
  - Somnolence [Unknown]
  - Headache [Unknown]
  - Haemorrhagic ovarian cyst [Unknown]
  - Decreased appetite [Unknown]
  - Feeling abnormal [Unknown]
  - Hyperhidrosis [Unknown]
  - Asthenia [Unknown]
  - Oral discomfort [Unknown]
  - Feeling hot [Unknown]
  - Hypersomnia [Unknown]
  - Off label use [Unknown]
  - Paraesthesia [Unknown]
  - Dizziness [Unknown]

NARRATIVE: CASE EVENT DATE: 2020
